FAERS Safety Report 9168262 (Version 5)
Quarter: 2013Q4

REPORT INFORMATION
  Report Type: Report from Study
  Country: DE (occurrence: DE)
  Receive Date: 20130318
  Receipt Date: 20131205
  Transmission Date: 20140711
  Serious: Yes (Hospitalization, Other)
  Sender: FDA-Public Use
  Company Number: PHHO2013DE003909

PATIENT
  Sex: 0

DRUGS (2)
  1. AMN107 [Suspect]
     Indication: CHRONIC MYELOID LEUKAEMIA
     Dosage: 800 MG, DAILY
     Route: 048
     Dates: start: 20120413, end: 20130503
  2. AMN107 [Suspect]
     Dosage: UNK
     Route: 048
     Dates: start: 20130510

REACTIONS (2)
  - Osteonecrosis [Recovered/Resolved with Sequelae]
  - Fracture [Recovered/Resolved]
